FAERS Safety Report 13095188 (Version 5)
Quarter: 2017Q2

REPORT INFORMATION
  Report Type: Spontaneous
  Country: US (occurrence: US)
  Receive Date: 20170107
  Receipt Date: 20170616
  Transmission Date: 20170830
  Serious: Yes (Other)
  Sender: FDA-Public Use
  Company Number: US-TEVA-724338ACC

PATIENT
  Age: 37 Year
  Sex: Female

DRUGS (26)
  1. ROPINIROLE. [Concomitant]
     Active Substance: ROPINIROLE
  2. GABAPENTIN. [Concomitant]
     Active Substance: GABAPENTIN
  3. METRONIDAZOLE. [Concomitant]
     Active Substance: METRONIDAZOLE
  4. ESCITALOPRAM [Concomitant]
     Active Substance: ESCITALOPRAM OXALATE
  5. COPAXONE [Suspect]
     Active Substance: GLATIRAMER ACETATE
     Indication: MULTIPLE SCLEROSIS
     Route: 058
     Dates: start: 20160922
  6. TRIAZOLAM. [Concomitant]
     Active Substance: TRIAZOLAM
  7. NITROFUR [Concomitant]
     Active Substance: NITROFURANTOIN
  8. VITAMIN D [Concomitant]
     Active Substance: CHOLECALCIFEROL
     Indication: MULTIPLE SCLEROSIS
     Route: 058
     Dates: start: 20160922
  9. SERTRALINE [Concomitant]
     Active Substance: SERTRALINE HYDROCHLORIDE
  10. HYDROCODONE BITARTRATE AND ACETAMINOPHEN [Concomitant]
     Active Substance: ACETAMINOPHEN\HYDROCODONE BITARTRATE
  11. AMOX [Concomitant]
     Active Substance: UNSPECIFIED INGREDIENT
  12. INDOMETHACIN. [Concomitant]
     Active Substance: INDOMETHACIN
  13. TRAMADOL. [Concomitant]
     Active Substance: TRAMADOL
  14. OXYBUTYNIN [Concomitant]
     Active Substance: OXYBUTYNIN
  15. CIPROFLOXACIN. [Concomitant]
     Active Substance: CIPROFLOXACIN
  16. ONDASETRON [Concomitant]
     Active Substance: ONDANSETRON
  17. VENLAFAXINE [Concomitant]
     Active Substance: VENLAFAXINE HYDROCHLORIDE
  18. FLUCONAZOLE. [Concomitant]
     Active Substance: FLUCONAZOLE
  19. BACLOFEN. [Concomitant]
     Active Substance: BACLOFEN
  20. AMPYRA [Concomitant]
     Active Substance: DALFAMPRIDINE
  21. METHOCARBAMOL. [Concomitant]
     Active Substance: METHOCARBAMOL
  22. AMOXACILLIN/K CLAV [Concomitant]
  23. VESICARE [Concomitant]
     Active Substance: SOLIFENACIN SUCCINATE
  24. MELOXICAM. [Concomitant]
     Active Substance: MELOXICAM
  25. HYDROCODONE [Concomitant]
     Active Substance: HYDROCODONE
  26. TOVIAZ [Concomitant]
     Active Substance: FESOTERODINE FUMARATE

REACTIONS (3)
  - Ankle fracture [Not Recovered/Not Resolved]
  - Gait disturbance [Not Recovered/Not Resolved]
  - Fall [Not Recovered/Not Resolved]

NARRATIVE: CASE EVENT DATE: 2016
